FAERS Safety Report 4815425-X (Version None)
Quarter: 2005Q4

REPORT INFORMATION
  Report Type: 
  Country: None (occurrence: None)
  Receive Date: 20051027
  Receipt Date: 20051027
  Transmission Date: 20060501
  Serious: No
  Sender: FDA-Public Use
  Company Number: None

PATIENT
  Age: 51 Year
  Sex: Female
  Weight: 86.637 kg

DRUGS (3)
  1. DURAGESIC-100 [Suspect]
     Indication: SJOGREN'S SYNDROME
     Dosage: 100 MG ONE Q 72H
     Dates: start: 20010601
  2. DURAGESIC-50 [Suspect]
     Indication: OSTEOARTHRITIS
     Dosage: 50 MG ONE Q 72H
  3. DURAGESIC-50 [Suspect]
     Indication: RHEUMATOID ARTHRITIS
     Dosage: 50 MG ONE Q 72H

REACTIONS (2)
  - DRUG INEFFECTIVE [None]
  - PHARMACEUTICAL PRODUCT COMPLAINT [None]
